FAERS Safety Report 10519043 (Version 4)
Quarter: 2014Q4

REPORT INFORMATION
  Report Type: Report from Study
  Country: US (occurrence: US)
  Receive Date: 20141015
  Receipt Date: 20141104
  Transmission Date: 20150528
  Serious: Yes (Other)
  Sender: FDA-Public Use
  Company Number: US-JNJFOC-20130910721

PATIENT
  Age: 69 Year
  Sex: Female
  Weight: 73.48 kg

DRUGS (5)
  1. REMICADE [Suspect]
     Active Substance: INFLIXIMAB
     Indication: RHEUMATOID ARTHRITIS
     Route: 042
     Dates: start: 200012
  2. REMICADE [Suspect]
     Active Substance: INFLIXIMAB
     Indication: RHEUMATOID ARTHRITIS
     Route: 042
     Dates: start: 2009
  3. REMICADE [Suspect]
     Active Substance: INFLIXIMAB
     Indication: RHEUMATOID ARTHRITIS
     Route: 042
     Dates: start: 2013
  4. REMICADE [Suspect]
     Active Substance: INFLIXIMAB
     Indication: RHEUMATOID ARTHRITIS
     Route: 042
     Dates: start: 20140730
  5. REMICADE [Suspect]
     Active Substance: INFLIXIMAB
     Indication: RHEUMATOID ARTHRITIS
     Route: 042
     Dates: start: 1998

REACTIONS (16)
  - Sinusitis [Not Recovered/Not Resolved]
  - Bronchitis [Not Recovered/Not Resolved]
  - Actinic keratosis [Unknown]
  - Arthralgia [Not Recovered/Not Resolved]
  - Fatigue [Recovering/Resolving]
  - Oropharyngeal pain [Not Recovered/Not Resolved]
  - Headache [Recovered/Resolved]
  - Hypersensitivity [Unknown]
  - Malignant melanoma [Recovered/Resolved]
  - Herpes simplex [Unknown]
  - Discomfort [Not Recovered/Not Resolved]
  - Injury [Recovered/Resolved]
  - Blood pressure increased [Recovered/Resolved]
  - Infusion related reaction [Not Recovered/Not Resolved]
  - Infection [Not Recovered/Not Resolved]
  - Solar lentigo [Unknown]

NARRATIVE: CASE EVENT DATE: 1998
